FAERS Safety Report 7022101-4 (Version None)
Quarter: 2010Q3

REPORT INFORMATION
  Report Type: 
  Country: None (occurrence: None)
  Receive Date: 20100930
  Receipt Date: 20100922
  Transmission Date: 20110219
  Serious: Yes (Hospitalization)
  Sender: FDA-Public Use
  Company Number: IL-BRISTOL-MYERS SQUIBB COMPANY-15310469

PATIENT
  Age: 63 Year
  Sex: Female

DRUGS (5)
  1. ERBITUX [Suspect]
     Indication: COLON CANCER
     Dosage: ALSO TAKEN  400MG,250MG/M2(1IN1 WK) 400MG/M2 LOADING DOSE
     Route: 042
  2. OXALIPLATIN [Concomitant]
     Indication: COLON CANCER METASTATIC
     Route: 042
  3. CAPECITABINE [Concomitant]
     Indication: COLON CANCER METASTATIC
     Dosage: 1400MG 850MG/M2 2 IN 1 DAY (1 TO14 DAYS EVERY 3 WKS)
     Route: 048
  4. IRINOTECAN HCL [Concomitant]
     Indication: COLON CANCER METASTATIC
     Dosage: 400MG/M2 LOADING DOSE
     Route: 042
  5. NEUPOGEN [Concomitant]

REACTIONS (1)
  - RENAL TUBULAR ACIDOSIS [None]
